FAERS Safety Report 9837968 (Version 1)
Quarter: 2014Q1

REPORT INFORMATION
  Report Type: Spontaneous
  Country: US (occurrence: US)
  Receive Date: 20140123
  Receipt Date: 20140123
  Transmission Date: 20141002
  Serious: Yes (Death)
  Sender: FDA-Public Use
  Company Number: US-NOVOPROD-397884

PATIENT
  Sex: Female

DRUGS (4)
  1. VICTOZA [Suspect]
     Indication: PRODUCT USED FOR UNKNOWN INDICATION
     Dosage: UNK
     Route: 058
     Dates: start: 20120101, end: 20120705
  2. BYETTA [Suspect]
     Indication: PRODUCT USED FOR UNKNOWN INDICATION
     Dosage: UNK
     Route: 058
     Dates: start: 20110101, end: 20120705
  3. JANUVIA [Suspect]
     Indication: PRODUCT USED FOR UNKNOWN INDICATION
  4. JANUMET [Suspect]
     Indication: PRODUCT USED FOR UNKNOWN INDICATION

REACTIONS (1)
  - Pancreatic carcinoma [Fatal]
